FAERS Safety Report 10263153 (Version 1)
Quarter: 2014Q2

REPORT INFORMATION
  Report Type: Spontaneous
  Country: DE (occurrence: DE)
  Receive Date: 20140626
  Receipt Date: 20140626
  Transmission Date: 20141212
  Serious: Yes (Hospitalization)
  Sender: FDA-Public Use
  Company Number: DE-MYLANLABS-2014S1014351

PATIENT
  Age: 49 Year
  Sex: Female
  Weight: 71 kg

DRUGS (2)
  1. ITRACONAZOL [Suspect]
     Indication: ONYCHOMYCOSIS
     Route: 048
     Dates: start: 20140510, end: 20140526
  2. PREDNISOLON [Concomitant]
     Route: 048

REACTIONS (5)
  - Chest pain [Not Recovered/Not Resolved]
  - Abdominal pain upper [Not Recovered/Not Resolved]
  - Nausea [Not Recovered/Not Resolved]
  - Cold sweat [Not Recovered/Not Resolved]
  - Liver function test abnormal [Not Recovered/Not Resolved]
